FAERS Safety Report 6073225-X (Version None)
Quarter: 2009Q1

REPORT INFORMATION
  Report Type: 
  Country: None (occurrence: None)
  Receive Date: 20090211
  Receipt Date: 20081030
  Transmission Date: 20090719
  Serious: No
  Sender: FDA-Public Use
  Company Number: A0754261A

PATIENT
  Age: 51 Year
  Sex: Female

DRUGS (5)
  1. ALTABAX [Suspect]
     Indication: IMPETIGO
     Dosage: 1APP TWICE PER DAY
     Route: 061
     Dates: start: 20080801
  2. NEURONTIN [Concomitant]
  3. VITAMINS [Concomitant]
  4. CHONDROITIN [Concomitant]
  5. GLUCOSAMINE [Concomitant]

REACTIONS (1)
  - DRUG INEFFECTIVE [None]
